FAERS Safety Report 25596137 (Version 2)
Quarter: 2025Q3

REPORT INFORMATION
  Report Type: Spontaneous
  Country: IL (occurrence: IL)
  Receive Date: 20250723
  Receipt Date: 20250730
  Transmission Date: 20251020
  Serious: Yes (Death, Hospitalization)
  Sender: ASTELLAS
  Company Number: IL-ASTELLAS-2025-AER-040006

PATIENT
  Age: 73 Year
  Sex: Female

DRUGS (5)
  1. XOSPATA [Suspect]
     Active Substance: GILTERITINIB
     Indication: Acute myeloid leukaemia
     Route: 048
     Dates: start: 2024
  2. XOSPATA [Suspect]
     Active Substance: GILTERITINIB
     Dosage: RESUMED
     Route: 048
  3. XOSPATA [Suspect]
     Active Substance: GILTERITINIB
     Dosage: FIVE TIMES PER WEEK
     Route: 048
  4. INSULIN NOS [Concomitant]
     Active Substance: INSULIN NOS
     Indication: Diabetes mellitus
     Route: 065
  5. CYCLOSPORINE [Concomitant]
     Active Substance: CYCLOSPORINE
     Indication: Bone marrow transplant
     Route: 065

REACTIONS (7)
  - Central nervous system leukaemia [Fatal]
  - Acute myeloid leukaemia [Fatal]
  - General physical health deterioration [Unknown]
  - Asthenia [Unknown]
  - Gait disturbance [Unknown]
  - Underdose [Unknown]
  - Off label use [Unknown]

NARRATIVE: CASE EVENT DATE: 20240101
